FAERS Safety Report 23932925 (Version 10)
Quarter: 2024Q4

REPORT INFORMATION
  Report Type: Spontaneous
  Country: US (occurrence: US)
  Receive Date: 20240603
  Receipt Date: 20241024
  Transmission Date: 20250114
  Serious: No
  Sender: PFIZER
  Company Number: US-PFIZER INC-PV202400070853

PATIENT
  Age: 7 Year
  Sex: Male
  Weight: 31.75 kg

DRUGS (6)
  1. GENOTROPIN [Suspect]
     Active Substance: SOMATROPIN
     Indication: Growth hormone deficiency
     Dosage: 1 MG AT LEAST ONE TIME DAY
     Dates: start: 2023
  2. GENOTROPIN [Suspect]
     Active Substance: SOMATROPIN
     Dosage: ONCE A DAY AT NIGHT
  3. GENOTROPIN [Suspect]
     Active Substance: SOMATROPIN
     Dosage: 0.8 MG, DAILY
  4. GENOTROPIN [Suspect]
     Active Substance: SOMATROPIN
     Dosage: 1.2 MG AT LEAST ONE TIME A DAY
  5. GENOTROPIN [Suspect]
     Active Substance: SOMATROPIN
     Dosage: 0.8 MG, DAILY
  6. VITAMINS [Concomitant]
     Active Substance: VITAMINS
     Dosage: 2 DF, DAILY (TWO CHEWABLE A DAY)

REACTIONS (7)
  - Drug dose omission by device [Unknown]
  - Device issue [Unknown]
  - Device material issue [Unknown]
  - Device mechanical issue [Unknown]
  - Device use error [Unknown]
  - Drug administered in wrong device [Unknown]
  - Device delivery system issue [Unknown]

NARRATIVE: CASE EVENT DATE: 20230101
